FAERS Safety Report 20395782 (Version 3)
Quarter: 2022Q3

REPORT INFORMATION
  Report Type: Report from Study
  Country: US (occurrence: US)
  Receive Date: 20220130
  Receipt Date: 20220623
  Transmission Date: 20221027
  Serious: No
  Sender: FDA-Public Use
  Company Number: US-NOVARTISTESTPH-NVSC2022US019524

PATIENT
  Sex: Male

DRUGS (3)
  1. TASIGNA [Suspect]
     Active Substance: NILOTINIB
     Indication: Myeloid leukaemia
     Dosage: 150 MG, BID (TAKE 2 CAPSULES (300MG) BY MOUTH TWICE A DAY)
     Route: 048
     Dates: start: 20130203
  2. TASIGNA [Suspect]
     Active Substance: NILOTINIB
     Dosage: 150 MG, BID (TAKE 2 CAPSULES (300MG) BY MOUTH TWICE DAILY. DO NOT EAT FOR 2HRS BEFORE DOSE OR 1HR AF
     Route: 048
  3. TASIGNA [Suspect]
     Active Substance: NILOTINIB
     Dosage: 150 MG, BID (TAKE 2 CAPSULES (300MG) BY MOUTH TWICE DAILY. DO NOT EAT FOR 2HRS BEFORE DOSE OR 1HR AF
     Route: 048

REACTIONS (2)
  - Oxygen saturation abnormal [Not Recovered/Not Resolved]
  - Cough [Not Recovered/Not Resolved]
